FAERS Safety Report 6801772-9 (Version None)
Quarter: 2010Q2

REPORT INFORMATION
  Report Type: 
  Country: None (occurrence: None)
  Receive Date: 20100629
  Receipt Date: 20100615
  Transmission Date: 20101027
  Serious: Yes (Other)
  Sender: FDA-Public Use
  Company Number: PHHY2010US39703

PATIENT
  Age: 59 Year
  Sex: Female
  Weight: 58.957 kg

DRUGS (4)
  1. RECLAST [Suspect]
     Indication: OSTEOPOROSIS
     Dosage: UNK
     Dates: start: 20100611
  2. BETA BLOCKING AGENTS [Concomitant]
     Dosage: 200 MG, QD
  3. SECTRAL [Concomitant]
     Indication: SUPRAVENTRICULAR TACHYCARDIA
     Dosage: 200 MG, QD
     Route: 048
  4. CALCIUM WITH VITAMIN D [Concomitant]
     Indication: OSTEOPOROSIS
     Dosage: 600 MG, BID

REACTIONS (4)
  - BRADYCARDIA [None]
  - CONVULSION [None]
  - FEELING HOT [None]
  - LOSS OF CONSCIOUSNESS [None]
